FAERS Safety Report 7767384-8 (Version None)
Quarter: 2011Q3

REPORT INFORMATION
  Report Type: 
  Country: None (occurrence: None)
  Receive Date: 20110922
  Receipt Date: 20110413
  Transmission Date: 20111222
  Serious: No
  Sender: FDA-Public Use
  Company Number: US-ASTRAZENECA-2009SE33182

PATIENT
  Age: 51 Year
  Sex: Female
  Weight: 109.8 kg

DRUGS (12)
  1. SEROQUEL [Suspect]
     Indication: DEPRESSION
     Route: 048
     Dates: start: 20030101
  2. RANITIDINE [Concomitant]
     Dates: start: 20080701
  3. SERTRALINE HYDROCHLORIDE [Concomitant]
     Dates: start: 20080506
  4. SEROQUEL [Suspect]
     Route: 048
     Dates: start: 20080520
  5. ABILIFY [Concomitant]
     Dates: start: 20080101
  6. DIOVAN [Concomitant]
     Dates: start: 20080629
  7. BUSPIRONE HCL [Concomitant]
     Dates: start: 20080506
  8. GEODON [Concomitant]
     Dates: start: 20070101
  9. LUNESTA [Concomitant]
     Dates: start: 20080519
  10. LAMICTAL [Concomitant]
     Dates: start: 20080624
  11. LITHIUM CARBONATE [Concomitant]
     Dates: start: 20080509
  12. SEROQUEL [Suspect]
     Route: 048
     Dates: start: 20040101, end: 20060101

REACTIONS (4)
  - TYPE 2 DIABETES MELLITUS [None]
  - OBESITY [None]
  - BLOOD CHOLESTEROL INCREASED [None]
  - HYPERLIPIDAEMIA [None]
